FAERS Safety Report 4925078-8 (Version None)
Quarter: 2006Q1

REPORT INFORMATION
  Report Type: 
  Country: None (occurrence: None)
  Receive Date: 20060222
  Receipt Date: 20060209
  Transmission Date: 20060701
  Serious: Yes (Other)
  Sender: FDA-Public Use
  Company Number: 2006020594

PATIENT
  Sex: Male
  Weight: 93.441 kg

DRUGS (3)
  1. VIAGRA [Suspect]
     Indication: ILL-DEFINED DISORDER
     Dosage: (50 MG,)
  2. WARFARIN SODIUM [Concomitant]
  3. ACYCLOVIR [Concomitant]

REACTIONS (2)
  - DRUG EFFECT DECREASED [None]
  - MULTIPLE MYELOMA [None]
